FAERS Safety Report 23681431 (Version 1)
Quarter: 2024Q1

REPORT INFORMATION
  Report Type: Spontaneous
  Country: US (occurrence: None)
  Receive Date: 20240328
  Receipt Date: 20240328
  Transmission Date: 20240410
  Serious: Yes (Other)
  Sender: FDA-Public Use
  Company Number: US-SUPERNUS Pharmaceuticals, Inc.-SUP202403-000984

PATIENT
  Age: 23 Year
  Sex: Female

DRUGS (4)
  1. QELBREE [Suspect]
     Active Substance: VILOXAZINE HYDROCHLORIDE
     Indication: Attention deficit hyperactivity disorder
     Dosage: NOT PROVIDED
     Dates: start: 20231014
  2. VILAZODONE [Concomitant]
     Active Substance: VILAZODONE
     Dosage: NOT PROVIDED
  3. METFORMIN [Concomitant]
     Active Substance: METFORMIN HYDROCHLORIDE
     Dosage: NOT PROVIDED
  4. VITAMIN D [Concomitant]
     Active Substance: VITAMIN D NOS
     Dosage: NOT PROVIDED

REACTIONS (3)
  - Pneumonia viral [Unknown]
  - Anxiety [Unknown]
  - Heart rate increased [Unknown]

NARRATIVE: CASE EVENT DATE: 20240311
